FAERS Safety Report 8608159-7 (Version None)
Quarter: 2012Q3

REPORT INFORMATION
  Report Type: 
  Country: None (occurrence: None)
  Receive Date: 20120821
  Receipt Date: 20110811
  Transmission Date: 20120928
  Serious: No
  Sender: FDA-Public Use
  Company Number: US-TEVA-296517USA

PATIENT
  Sex: Female

DRUGS (1)
  1. FLUCONAZOLE [Suspect]
     Indication: FUNGAL INFECTION
     Route: 048

REACTIONS (6)
  - PRURITUS [None]
  - BLISTER [None]
  - ERYTHEMA [None]
  - RASH ERYTHEMATOUS [None]
  - WOUND SECRETION [None]
  - SWELLING [None]
